FAERS Safety Report 4824601-1 (Version None)
Quarter: 2005Q4

REPORT INFORMATION
  Report Type: 
  Country: None (occurrence: None)
  Receive Date: 20051110
  Receipt Date: 20040818
  Transmission Date: 20060501
  Serious: Yes (Death, Other)
  Sender: FDA-Public Use
  Company Number: GBWYE985518AUG04

PATIENT
  Sex: Male

DRUGS (2)
  1. ENBREL [Suspect]
     Indication: DRUG USE FOR UNKNOWN INDICATION
     Route: 058
     Dates: start: 20031001, end: 20040721
  2. ARAVA [Concomitant]

REACTIONS (4)
  - DEATH [None]
  - DISCOMFORT [None]
  - PAIN [None]
  - PANCREATIC CARCINOMA [None]
